FAERS Safety Report 4428815-4 (Version None)
Quarter: 2004Q3

REPORT INFORMATION
  Report Type: 
  Country: None (occurrence: None)
  Receive Date: 20040818
  Receipt Date: 20040809
  Transmission Date: 20050211
  Serious: Yes (Hospitalization)
  Sender: FDA-Public Use
  Company Number: FRPFM-E-20040090

PATIENT
  Age: 54 Year
  Sex: Male

DRUGS (2)
  1. NAVELBINE [Suspect]
     Dosage: 120MG WEEKLY
     Route: 048
     Dates: start: 20040624, end: 20040624
  2. DAPSONE [Suspect]
     Indication: IDIOPATHIC THROMBOCYTOPENIC PURPURA
     Dosage: 100MG PER DAY
     Route: 048

REACTIONS (4)
  - AGRANULOCYTOSIS [None]
  - BACTERIAL INFECTION [None]
  - LEUKOCYTOSIS [None]
  - NEUTROPENIA [None]
